FAERS Safety Report 11896104 (Version 1)
Quarter: 2016Q1

REPORT INFORMATION
  Report Type: Spontaneous
  Country: US (occurrence: US)
  Receive Date: 20160107
  Receipt Date: 20160107
  Transmission Date: 20160526
  Serious: No
  Sender: FDA-Public Use
  Company Number: US-ROCHE-1542549

PATIENT
  Sex: Female

DRUGS (5)
  1. ACYCLOVIR. [Concomitant]
     Active Substance: ACYCLOVIR
  2. RITUXAN [Suspect]
     Active Substance: RITUXIMAB
     Indication: PRODUCT USED FOR UNKNOWN INDICATION
     Route: 042
  3. IMBRUVICA [Concomitant]
     Active Substance: IBRUTINIB
  4. LOSARTAN. [Concomitant]
     Active Substance: LOSARTAN
  5. XANAX [Concomitant]
     Active Substance: ALPRAZOLAM

REACTIONS (2)
  - Vomiting [Unknown]
  - Rash erythematous [Unknown]

NARRATIVE: CASE EVENT DATE: 2010
